FAERS Safety Report 22647668 (Version 1)
Quarter: 2023Q2

REPORT INFORMATION
  Report Type: Spontaneous
  Country: RU (occurrence: RU)
  Receive Date: 20230628
  Receipt Date: 20230628
  Transmission Date: 20230721
  Serious: Yes (Other)
  Sender: FDA-Public Use
  Company Number: RU-SA-2023SA192522

PATIENT
  Age: 70 Year
  Sex: Female
  Weight: 92 kg

DRUGS (1)
  1. APIDRA SOLOSTAR [Suspect]
     Active Substance: INSULIN GLULISINE
     Indication: Hypoglycaemia
     Dosage: UNK
     Route: 058
     Dates: start: 20230430, end: 20230503

REACTIONS (2)
  - Rash [Recovered/Resolved]
  - Pruritus [Recovered/Resolved]

NARRATIVE: CASE EVENT DATE: 20230430
